FAERS Safety Report 6944366-7 (Version None)
Quarter: 2010Q3

REPORT INFORMATION
  Report Type: 
  Country: None (occurrence: None)
  Receive Date: 20100827
  Receipt Date: 20100824
  Transmission Date: 20110219
  Serious: Yes (Other)
  Sender: FDA-Public Use
  Company Number: US-ASTRAZENECA-2007UW21665

PATIENT
  Age: 564 Month
  Sex: Male
  Weight: 127.9 kg

DRUGS (23)
  1. SEROQUEL [Suspect]
     Indication: ANXIETY
     Dosage: 12.5 MG TO 25 MG
     Route: 048
     Dates: start: 20031101, end: 20070312
  2. SEROQUEL [Suspect]
     Indication: DEPRESSION
     Dosage: 12.5 MG TO 25 MG
     Route: 048
     Dates: start: 20031101, end: 20070312
  3. SEROQUEL [Suspect]
     Route: 048
     Dates: start: 20041028
  4. SEROQUEL [Suspect]
     Route: 048
     Dates: start: 20041028
  5. NEXIUM [Concomitant]
     Route: 065
  6. LUNESTA [Concomitant]
     Route: 065
  7. VIAGRA [Concomitant]
     Route: 048
  8. TRIAMCINOLONE [Concomitant]
     Route: 061
  9. EFFEXOR XR [Concomitant]
     Route: 048
  10. BYETTA [Concomitant]
     Route: 048
  11. LISINOPRIL [Concomitant]
     Dosage: DAILY
     Route: 065
  12. ENALAPRIL [Concomitant]
     Route: 065
  13. LASIX [Concomitant]
     Dosage: STRENGTH 40 MG- 160 MG
     Route: 065
  14. ZAROXOLYN [Concomitant]
     Dosage: STRENGTH 2.5 MG - 5 MG
     Route: 065
  15. POTASSIUM CHLORIDE [Concomitant]
     Route: 065
  16. GLUCOTROL XL [Concomitant]
     Dosage: STRENGTH 5 MG - 20 MG
     Route: 065
  17. LANTUS [Concomitant]
     Route: 058
  18. NOVOLOG [Concomitant]
     Route: 065
  19. CLINDAMYCIN [Concomitant]
     Route: 065
  20. LEVAQUIN [Concomitant]
     Route: 065
  21. ATENOLOL [Concomitant]
     Route: 065
  22. VICODIN [Concomitant]
     Route: 048
  23. DYAZIDE [Concomitant]
     Route: 065

REACTIONS (10)
  - ARTHROPATHY [None]
  - COUGH [None]
  - DIABETES MELLITUS [None]
  - DIABETIC COMA [None]
  - DIABETIC KETOACIDOSIS [None]
  - ECZEMA [None]
  - JOINT INJURY [None]
  - MUSCULOSKELETAL CHEST PAIN [None]
  - OEDEMA [None]
  - OSTEOARTHRITIS [None]
